FAERS Safety Report 12173610 (Version 1)
Quarter: 2016Q1

REPORT INFORMATION
  Report Type: Spontaneous
  Country: IN (occurrence: None)
  Receive Date: 20160311
  Receipt Date: 20160311
  Transmission Date: 20160526
  Serious: Yes (Disabling)
  Sender: FDA-Public Use
  Company Number: None

PATIENT
  Age: 41 Year
  Sex: Male
  Weight: 82 kg

DRUGS (4)
  1. LONAZEP [Concomitant]
  2. LIPITOR [Concomitant]
     Active Substance: ATORVASTATIN CALCIUM
  3. CORDARONE [Concomitant]
     Active Substance: AMIODARONE HYDROCHLORIDE
  4. ARBITAL AV 40/10 40MG/10MG [Suspect]
     Active Substance: ATORVASTATIN CALCIUM\TELMISARTAN
     Route: 048

REACTIONS (5)
  - Disability [None]
  - Palpitations [None]
  - Dizziness [None]
  - Anxiety [None]
  - Asthenia [None]

NARRATIVE: CASE EVENT DATE: 20160310
